FAERS Safety Report 20130709 (Version 1)
Quarter: 2021Q4

REPORT INFORMATION
  Report Type: Spontaneous
  Country: CA (occurrence: None)
  Receive Date: 20211130
  Receipt Date: 20211130
  Transmission Date: 20220303
  Serious: Yes (Other)
  Sender: FDA-Public Use
  Company Number: CA-ROCHE-2965777

PATIENT
  Age: 45 Year
  Sex: Male

DRUGS (4)
  1. RITUXIMAB [Suspect]
     Active Substance: RITUXIMAB
     Indication: Rheumatoid arthritis
     Route: 042
  2. METHYLPREDNISOLONE [Suspect]
     Active Substance: METHYLPREDNISOLONE
     Indication: Premedication
     Route: 042
  3. PREDNISONE [Concomitant]
     Active Substance: PREDNISONE
     Route: 048
  4. RISEDRONATE SODIUM [Concomitant]
     Active Substance: RISEDRONATE SODIUM

REACTIONS (1)
  - Visual impairment [Unknown]
